FAERS Safety Report 13652126 (Version 1)
Quarter: 2017Q2

REPORT INFORMATION
  Report Type: Report from Study
  Country: ES (occurrence: ES)
  Receive Date: 20170614
  Receipt Date: 20170614
  Transmission Date: 20170830
  Serious: Yes (Hospitalization)
  Sender: FDA-Public Use
  Company Number: ES-AMGEN-ESPCT2013035211

PATIENT
  Age: 69 Year
  Sex: Female
  Weight: 70 kg

DRUGS (18)
  1. LORAZEPAM. [Concomitant]
     Active Substance: LORAZEPAM
     Dosage: 1 MG, UNK
     Route: 048
  2. ENOXAPARIN [Concomitant]
     Active Substance: ENOXAPARIN
     Dosage: 40 MG, UNK
     Route: 058
     Dates: start: 20130129, end: 20130215
  3. PACLITAXEL. [Concomitant]
     Active Substance: PACLITAXEL
     Indication: MALIGNANT PERITONEAL NEOPLASM
     Dosage: 220 MG, UNK
     Route: 042
     Dates: start: 20130312
  4. ENALAPRIL [Concomitant]
     Active Substance: ENALAPRIL
     Dosage: 20 MG, UNK
     Route: 048
  5. SIMVASTATINE [Concomitant]
     Active Substance: SIMVASTATIN
     Dosage: 40 MG, UNK
     Route: 048
  6. TIROXIN [Concomitant]
     Dosage: 100 MUG, UNK
     Route: 048
  7. AMG 386 [Suspect]
     Active Substance: TREBANANIB
     Indication: MALIGNANT PERITONEAL NEOPLASM
     Dates: start: 20121102
  8. TRAMADOL. [Concomitant]
     Active Substance: TRAMADOL
     Dosage: 50 MG, UNK
     Route: 048
     Dates: start: 20130214, end: 20130215
  9. METAMIZOLE [Concomitant]
     Active Substance: METAMIZOLE
     Dosage: 575 MG, UNK
     Route: 048
     Dates: start: 20130214
  10. FENTANIL [Concomitant]
     Active Substance: FENTANYL
     Dosage: 12 MUG, UNK
     Route: 062
     Dates: start: 20130309
  11. CITALOPRAM [Concomitant]
     Active Substance: CITALOPRAM HYDROBROMIDE
     Dosage: 20 MG, UNK
     Route: 048
     Dates: start: 20130403, end: 20130410
  12. OMEPRAZOLE. [Concomitant]
     Active Substance: OMEPRAZOLE
     Dosage: 20 MG, UNK
     Route: 048
     Dates: start: 20130213, end: 20130215
  13. ONDANSETRON [Concomitant]
     Active Substance: ONDANSETRON
     Dosage: 8 MG, UNK
     Route: 048
     Dates: start: 20130309
  14. PARACETAMOL [Concomitant]
     Active Substance: ACETAMINOPHEN
     Dosage: 1 G, UNK
     Route: 048
     Dates: start: 20130214, end: 20130311
  15. CARBOPLATIN. [Concomitant]
     Active Substance: CARBOPLATIN
     Indication: MALIGNANT PERITONEAL NEOPLASM
     Dosage: 365 MG, UNK
     Route: 042
     Dates: start: 20130312
  16. BUSCAPINE [Concomitant]
     Active Substance: BUTYLSCOPOLAMINE
     Dosage: UNK
     Route: 048
     Dates: start: 20130311
  17. DEXAMETHASONE. [Concomitant]
     Active Substance: DEXAMETHASONE
     Dosage: 1 MG, UNK
     Route: 048
     Dates: start: 20130311
  18. PAROXETINE. [Concomitant]
     Active Substance: PAROXETINE
     Dosage: 20 MG, UNK
     Route: 048
     Dates: start: 20130410

REACTIONS (1)
  - Pleural effusion [Recovered/Resolved]

NARRATIVE: CASE EVENT DATE: 20130516
